FAERS Safety Report 7204847-8 (Version None)
Quarter: 2010Q4

REPORT INFORMATION
  Report Type: 
  Country: None (occurrence: None)
  Receive Date: 20101230
  Receipt Date: 20101216
  Transmission Date: 20110411
  Serious: Yes (Death, Other)
  Sender: FDA-Public Use
  Company Number: PT-CELGENEUS-130-50794-10122131

PATIENT

DRUGS (2)
  1. VIDAZA [Suspect]
     Route: 058
  2. VIDAZA [Suspect]
     Indication: ACUTE MYELOID LEUKAEMIA

REACTIONS (5)
  - DISEASE PROGRESSION [None]
  - GASTROINTESTINAL TOXICITY [None]
  - HAEMATOTOXICITY [None]
  - PNEUMONIA [None]
  - SKIN TOXICITY [None]
